FAERS Safety Report 4452121-5 (Version None)
Quarter: 2004Q3

REPORT INFORMATION
  Report Type: 
  Country: None (occurrence: None)
  Receive Date: 20040915
  Receipt Date: 20040915
  Transmission Date: 20050211
  Serious: Yes (Life-Threatening, Hospitalization, Other)
  Sender: FDA-Public Use
  Company Number: None

PATIENT
  Age: 38 Year
  Sex: Male
  Weight: 71.6683 kg

DRUGS (1)
  1. VFEND [Suspect]
     Indication: CANDIDIASIS
     Dosage: 200 MG BID ORAL
     Route: 048
     Dates: start: 20040621, end: 20040820

REACTIONS (3)
  - CONVULSION [None]
  - IMPAIRED DRIVING ABILITY [None]
  - SYNCOPE [None]
